FAERS Safety Report 25936903 (Version 1)
Quarter: 2025Q4

REPORT INFORMATION
  Report Type: Spontaneous
  Country: EU (occurrence: EU)
  Receive Date: 20251017
  Receipt Date: 20251017
  Transmission Date: 20260117
  Serious: Yes (Other)
  Sender: ELI LILLY AND COMPANY
  Company Number: EU-ELI_LILLY_AND_COMPANY-IT202510010173

PATIENT
  Sex: Female
  Weight: 57 kg

DRUGS (2)
  1. MOUNJARO [Suspect]
     Active Substance: TIRZEPATIDE
     Indication: Weight control
     Dosage: 2.5 MG, WEEKLY (1/W)
     Route: 065
  2. MOUNJARO [Suspect]
     Active Substance: TIRZEPATIDE
     Indication: Weight control
     Dosage: 2.5 MG, WEEKLY (1/W)
     Route: 065

REACTIONS (12)
  - Anxiety [Unknown]
  - Hypotension [Unknown]
  - Tachycardia [Unknown]
  - Feeling hot [Unknown]
  - Hyperhidrosis [Unknown]
  - Paraesthesia [Unknown]
  - Feeling cold [Unknown]
  - Chills [Unknown]
  - Presyncope [Unknown]
  - Drug titration error [Unknown]
  - Asthenia [Unknown]
  - Diarrhoea [Unknown]
